FAERS Safety Report 8974294 (Version 1)
Quarter: 2012Q4

REPORT INFORMATION
  Report Type: Spontaneous
  Country: US (occurrence: None)
  Receive Date: 20121217
  Receipt Date: 20121217
  Transmission Date: 20130627
  Serious: Yes (Other)
  Sender: FDA-Public Use
  Company Number: None

PATIENT
  Sex: Male
  Weight: 29.48 kg

DRUGS (1)
  1. TAMIFLU [Suspect]
     Indication: FLU
     Dosage: 10ml Once Daily
     Dates: start: 20121214, end: 20121214

REACTIONS (5)
  - Body temperature increased [None]
  - Crying [None]
  - Speech disorder [None]
  - Fear [None]
  - Hallucination [None]
